FAERS Safety Report 10628796 (Version 1)
Quarter: 2014Q4

REPORT INFORMATION
  Report Type: Spontaneous
  Country: US (occurrence: US)
  Receive Date: 20141205
  Receipt Date: 20141205
  Transmission Date: 20150529
  Serious: No
  Sender: FDA-Public Use
  Company Number: US-BRISTOL-MYERS SQUIBB COMPANY-21341300

PATIENT
  Age: 86 Year
  Sex: Male

DRUGS (15)
  1. COUMADIN [Suspect]
     Active Substance: WARFARIN SODIUM
  2. POTASSIUM CHLORIDE. [Concomitant]
     Active Substance: POTASSIUM CHLORIDE
  3. OSCAL [Concomitant]
     Active Substance: CALCIUM CARBONATE
  4. ASPIRIN. [Concomitant]
     Active Substance: ASPIRIN
  5. SOTALOL. [Concomitant]
     Active Substance: SOTALOL
  6. COLACE [Concomitant]
     Active Substance: DOCUSATE SODIUM
  7. VITAMIN D3 [Concomitant]
     Active Substance: CHOLECALCIFEROL
  8. ATORVASTATIN [Concomitant]
     Active Substance: ATORVASTATIN
  9. ENULOSE [Concomitant]
     Active Substance: LACTULOSE
  10. MULTIVITAMIN [Concomitant]
     Active Substance: VITAMINS
  11. NITROGLYCERIN. [Concomitant]
     Active Substance: NITROGLYCERIN
  12. VITAMIN B [Concomitant]
     Active Substance: VITAMIN B
  13. LECITHIN [Concomitant]
     Active Substance: LECITHIN
  14. LEVOTHYROXINE [Concomitant]
     Active Substance: LEVOTHYROXINE
  15. VITAMIN C [Concomitant]
     Active Substance: ASCORBIC ACID

REACTIONS (2)
  - Ecchymosis [Recovering/Resolving]
  - Blood count abnormal [Recovering/Resolving]
